FAERS Safety Report 8840975 (Version 2)
Quarter: 2015Q3

REPORT INFORMATION
  Report Type: Report from Study
  Country: US (occurrence: US)
  Receive Date: 20121015
  Receipt Date: 20150826
  Transmission Date: 20151125
  Serious: Yes (Hospitalization)
  Sender: FDA-Public Use
  Company Number: US-ROCHE-1139898

PATIENT
  Sex: Male

DRUGS (11)
  1. NUTROPIN AQ [Suspect]
     Active Substance: SOMATROPIN
     Route: 058
  2. ZANTAC [Concomitant]
     Active Substance: RANITIDINE HYDROCHLORIDE
  3. NUTROPIN AQ [Suspect]
     Active Substance: SOMATROPIN
     Indication: CYSTIC FIBROSIS
     Route: 058
  4. NUTROPIN AQ [Suspect]
     Active Substance: SOMATROPIN
     Route: 058
  5. OXANDROLONE. [Concomitant]
     Active Substance: OXANDROLONE
     Route: 065
     Dates: start: 199711, end: 199803
  6. PREDNISONE. [Concomitant]
     Active Substance: PREDNISONE
     Route: 065
  7. NUTROPIN AQ [Suspect]
     Active Substance: SOMATROPIN
     Route: 058
  8. NUTROPIN AQ [Suspect]
     Active Substance: SOMATROPIN
     Indication: DELAYED PUBERTY
     Route: 058
  9. TESTOSTERONE. [Concomitant]
     Active Substance: TESTOSTERONE
     Route: 065
  10. NUTROPIN AQ [Suspect]
     Active Substance: SOMATROPIN
     Indication: GROWTH HORMONE DEFICIENCY
     Dosage: 0.54 CC
     Route: 058
  11. NUTROPIN AQ [Suspect]
     Active Substance: SOMATROPIN
     Route: 065
     Dates: start: 19970123

REACTIONS (7)
  - Sinusitis [Unknown]
  - Gynaecomastia [Unknown]
  - Mood swings [Unknown]
  - Hunger [Unknown]
  - Stress [Unknown]
  - Bronchitis [Unknown]
  - Pyrexia [Unknown]
